FAERS Safety Report 5401241-7 (Version None)
Quarter: 2007Q3

REPORT INFORMATION
  Report Type: 
  Country: None (occurrence: None)
  Receive Date: 20070731
  Receipt Date: 20070716
  Transmission Date: 20080115
  Serious: Yes (Death, Life-Threatening, Hospitalization)
  Sender: FDA-Public Use
  Company Number: DE-AVENTIS-200121842DE

PATIENT
  Sex: Male
  Weight: 75 kg

DRUGS (3)
  1. PLACEBO [Suspect]
     Indication: MULTIPLE SYSTEM ATROPHY
     Route: 048
     Dates: start: 20011201, end: 20011203
  2. MACROGOL [Concomitant]
     Indication: CONSTIPATION
     Route: 048
  3. LACTULOSE [Concomitant]
     Indication: CONSTIPATION
     Route: 048

REACTIONS (4)
  - DEATH [None]
  - GASTROINTESTINAL HAEMORRHAGE [None]
  - MYOCARDIAL INFARCTION [None]
  - RESPIRATORY FAILURE [None]
